FAERS Safety Report 10669715 (Version 1)
Quarter: 2014Q4

REPORT INFORMATION
  Report Type: Spontaneous
  Country: TW (occurrence: TW)
  Receive Date: 20141222
  Receipt Date: 20141222
  Transmission Date: 20150529
  Serious: Yes (Other)
  Sender: FDA-Public Use
  Company Number: TW-GLAXOSMITHKLINE-TW2014GSK039805

PATIENT
  Age: 14 Month
  Sex: Female

DRUGS (1)
  1. MELPHALAN [Suspect]
     Active Substance: MELPHALAN
     Indication: RETINOBLASTOMA
     Dosage: 5 MG, UNK
     Route: 047

REACTIONS (5)
  - IIIrd nerve disorder [Unknown]
  - Off label use [Unknown]
  - Chorioretinal atrophy [Unknown]
  - Eyelid oedema [Unknown]
  - Retinal artery occlusion [Unknown]
